FAERS Safety Report 9139934 (Version 1)
Quarter: 2013Q1

REPORT INFORMATION
  Report Type: Spontaneous
  Country: US (occurrence: US)
  Receive Date: 20130305
  Receipt Date: 20130305
  Transmission Date: 20140127
  Serious: Yes (Hospitalization)
  Sender: FDA-Public Use
  Company Number: US-SANOFI-AVENTIS-2013SA020560

PATIENT
  Age: 52 Year
  Sex: Female

DRUGS (2)
  1. LANTUS SOLOSTAR [Suspect]
     Dosage: DOSE:50 UNIT(S)
     Route: 051
  2. SOLOSTAR [Suspect]

REACTIONS (5)
  - Staphylococcal sepsis [Unknown]
  - Bedridden [Unknown]
  - Weight decreased [Unknown]
  - Blood glucose increased [Unknown]
  - Incorrect storage of drug [Unknown]
